FAERS Safety Report 10404729 (Version 1)
Quarter: 2014Q3

REPORT INFORMATION
  Report Type: Other
  Country: FR (occurrence: FR)
  Receive Date: 20140824
  Receipt Date: 20140824
  Transmission Date: 20150326
  Serious: Yes (Hospitalization)
  Sender: FDA-Public Use
  Company Number: FR-MYLANLABS-2014M1001821

PATIENT

DRUGS (11)
  1. MIDAZOLAM /00634102/ [Suspect]
     Active Substance: MIDAZOLAM\MIDAZOLAM HYDROCHLORIDE
     Dosage: UNK
     Dates: start: 20081203, end: 20081215
  2. FENTANYL. [Suspect]
     Active Substance: FENTANYL
     Dosage: UNK
     Dates: start: 20081203, end: 20081215
  3. VALIUM [Concomitant]
     Active Substance: DIAZEPAM
     Dosage: 40 MG, QD
  4. TERCIAN                            /00759301/ [Concomitant]
     Active Substance: CYAMEMAZINE
     Dosage: 125 MG, QD
  5. IKARAN [Concomitant]
     Active Substance: DIHYDROERGOTAMINE MESYLATE
     Dosage: 5 MG, BID
  6. MEPRONIZINE                        /00647801/ [Concomitant]
     Dosage: 2 TABLETS HS
  7. ZOPLICONE [Concomitant]
     Active Substance: ZOPICLONE
     Dosage: UNK UNK, HS
  8. TRANXENE T-TAB [Concomitant]
     Active Substance: CLORAZEPATE DIPOTASSIUM
     Dosage: 60 MG, QD
  9. EQUANIL [Concomitant]
     Active Substance: MEPROBAMATE
     Dosage: 1600 MG, QD
  10. DIPRIVAN [Suspect]
     Active Substance: PROPOFOL
     Dosage: UNK
     Dates: start: 20081203, end: 20081215
  11. CYMBALTA [Concomitant]
     Active Substance: DULOXETINE HYDROCHLORIDE
     Dosage: 60 MG, QD

REACTIONS (5)
  - Drug withdrawal convulsions [Recovered/Resolved]
  - Suicide attempt [None]
  - Status epilepticus [None]
  - Intentional overdose [None]
  - Confusional state [None]

NARRATIVE: CASE EVENT DATE: 20081216
